FAERS Safety Report 6911403-5 (Version None)
Quarter: 2010Q3

REPORT INFORMATION
  Report Type: 
  Country: None (occurrence: None)
  Receive Date: 20100806
  Receipt Date: 20100729
  Transmission Date: 20110219
  Serious: Yes (Hospitalization, Other)
  Sender: FDA-Public Use
  Company Number: JP-JNJFOC-20100605373

PATIENT
  Age: 76 Year
  Sex: Female

DRUGS (9)
  1. TOPIRAMATE [Suspect]
     Indication: EPILEPSY
     Route: 048
  2. TEGRETOL [Suspect]
     Indication: EPILEPSY
     Route: 048
  3. ASPIRIN [Concomitant]
     Route: 048
  4. TAKEPRON [Concomitant]
     Route: 048
  5. BONALON [Concomitant]
     Route: 048
  6. TENORMIN [Concomitant]
     Route: 048
  7. WARFARIN [Concomitant]
     Route: 048
  8. LIPITOR [Concomitant]
     Route: 048
  9. BLOPRESS [Concomitant]
     Route: 048

REACTIONS (3)
  - DRUG ERUPTION [None]
  - EOSINOPHIL COUNT INCREASED [None]
  - MOUTH ULCERATION [None]
